FAERS Safety Report 5047855-8 (Version None)
Quarter: 2006Q3

REPORT INFORMATION
  Report Type: 
  Country: None (occurrence: None)
  Receive Date: 20060703
  Receipt Date: 20060626
  Transmission Date: 20061208
  Serious: Yes (Other)
  Sender: FDA-Public Use
  Company Number: 007873

PATIENT
  Age: 71 Year
  Sex: Female

DRUGS (3)
  1. MEDROXYPROGESTERONE ACETATE [Suspect]
     Dosage: ORAL
     Dates: start: 19830101, end: 20010501
  2. PREMARIN [Suspect]
     Dosage: ORAL
     Route: 048
     Dates: start: 19830101, end: 20010501
  3. PROVERA [Suspect]
     Dosage: ORAL
     Route: 048
     Dates: start: 19830101, end: 20010501

REACTIONS (1)
  - BREAST CANCER [None]
